FAERS Safety Report 9500284 (Version 1)
Quarter: 2013Q1

REPORT INFORMATION
  Report Type: Spontaneous
  Country: US (occurrence: None)
  Receive Date: 20130125
  Receipt Date: 20130125
  Transmission Date: 20140127
  Serious: No
  Sender: FDA-Public Use
  Company Number: 2012PP000071

PATIENT
  Age: 6 Year
  Sex: Female

DRUGS (1)
  1. NATROBA [Suspect]
     Indication: LICE INFESTATION
     Dosage: 0.9 PCT, TOP
     Dates: start: 20121103

REACTIONS (3)
  - Pruritus [None]
  - Skin irritation [None]
  - Erythema [None]
